FAERS Safety Report 16681911 (Version 2)
Quarter: 2024Q1

REPORT INFORMATION
  Report Type: Spontaneous
  Country: NO (occurrence: NO)
  Receive Date: 20190808
  Receipt Date: 20240314
  Transmission Date: 20240410
  Serious: Yes (Disabling, Other)
  Sender: FDA-Public Use
  Company Number: None

PATIENT
  Age: 19 Year
  Sex: Female

DRUGS (2)
  1. PROCYSBI [Suspect]
     Active Substance: CYSTEAMINE BITARTRATE
     Indication: Cystinosis
     Dosage: FIRST DOSE
     Route: 065
  2. ETHYL ACRYLATE\METHACRYLIC ACID [Suspect]
     Active Substance: ETHYL ACRYLATE\METHACRYLIC ACID
     Dosage: UNK
     Route: 048

REACTIONS (1)
  - Fibrosing colonopathy [Unknown]

NARRATIVE: CASE EVENT DATE: 20190718
